FAERS Safety Report 5367286-0 (Version None)
Quarter: 2007Q2

REPORT INFORMATION
  Report Type: 
  Country: None (occurrence: None)
  Receive Date: 20070622
  Receipt Date: 20070213
  Transmission Date: 20071010
  Serious: Yes (Other)
  Sender: FDA-Public Use
  Company Number: US-BRISTOL-MYERS SQUIBB COMPANY-13687843

PATIENT
  Age: 78 Year
  Sex: Male

DRUGS (3)
  1. PRINIVIL [Suspect]
     Indication: CARDIAC FAILURE
     Route: 048
     Dates: start: 20040928
  2. POTASSIUM CHLORIDE [Suspect]
     Dates: start: 20040928
  3. SPIRONOLACTONE [Suspect]
     Indication: CARDIAC FAILURE
     Route: 048
     Dates: start: 20050124

REACTIONS (4)
  - ABDOMINAL PAIN [None]
  - ASTHENIA [None]
  - BLOOD POTASSIUM INCREASED [None]
  - FATIGUE [None]
